FAERS Safety Report 7585486-6 (Version None)
Quarter: 2011Q2

REPORT INFORMATION
  Report Type: 
  Country: None (occurrence: None)
  Receive Date: 20110531
  Receipt Date: 20100518
  Transmission Date: 20111010
  Serious: Yes (Hospitalization)
  Sender: FDA-Public Use
  Company Number: WAES 1005USA02555

PATIENT
  Age: 52 Year
  Sex: Male

DRUGS (6)
  1. JANUMET [Suspect]
     Dosage: 500MG/50 MG/BID/PO
     Route: 048
  2. ACTOS [Concomitant]
  3. CELEXA [Concomitant]
  4. SYNTHROID [Concomitant]
  5. ENALAPRIL MALEATE [Concomitant]
  6. HYDROCHLOROTHIAZIDE [Concomitant]

REACTIONS (1)
  - PANCREATITIS [None]
